FAERS Safety Report 7562222-0 (Version None)
Quarter: 2011Q2

REPORT INFORMATION
  Report Type: 
  Country: None (occurrence: None)
  Receive Date: 20110525
  Receipt Date: 20110414
  Transmission Date: 20111010
  Serious: No
  Sender: FDA-Public Use
  Company Number: 326712

PATIENT
  Age: 58 Year
  Sex: Female

DRUGS (2)
  1. GLBYURIDE (GLIBENCLAMIDE) [Concomitant]
  2. VICTOZA [Suspect]
     Indication: TYPE 2 DIABETES MELLITUS
     Dosage: 1.8 MG, QD, SUBCUTANEOUS
     Route: 058

REACTIONS (5)
  - ABDOMINAL PAIN UPPER [None]
  - TREMOR [None]
  - DIZZINESS [None]
  - BLOOD GLUCOSE INCREASED [None]
  - NAUSEA [None]
